FAERS Safety Report 11569586 (Version 1)
Quarter: 2015Q3

REPORT INFORMATION
  Report Type: Spontaneous
  Country: US (occurrence: None)
  Receive Date: 20150928
  Receipt Date: 20150928
  Transmission Date: 20151125
  Serious: Yes (Hospitalization)
  Sender: FDA-Public Use
  Company Number: None

PATIENT
  Age: 62 Year
  Sex: Male
  Weight: 71 kg

DRUGS (17)
  1. GLIPIZIDE. [Concomitant]
     Active Substance: GLIPIZIDE
  2. CELLCEPT [Concomitant]
     Active Substance: MYCOPHENOLATE MOFETIL\MYCOPHENOLATE MOFETIL HYDROCHLORIDE
  3. LOPRESSOR [Concomitant]
     Active Substance: METOPROLOL TARTRATE
  4. ACARBOSE. [Concomitant]
     Active Substance: ACARBOSE
  5. FINASTERIDE. [Concomitant]
     Active Substance: FINASTERIDE
  6. HUMALOG [Concomitant]
     Active Substance: INSULIN LISPRO
  7. INSULIN [Concomitant]
     Active Substance: INSULIN NOS
  8. POTASSIUM CHLORIDE. [Concomitant]
     Active Substance: POTASSIUM CHLORIDE
  9. ASPIRIN. [Concomitant]
     Active Substance: ASPIRIN
  10. DILTIAZEM [Concomitant]
     Active Substance: DILTIAZEM
  11. INDOMETHACIN. [Suspect]
     Active Substance: INDOMETHACIN
     Indication: ARTHRALGIA
     Route: 048
     Dates: start: 20150829, end: 20150830
  12. ZOSYN [Concomitant]
     Active Substance: PIPERACILLIN SODIUM\TAZOBACTAM SODIUM
  13. AMIODARONE [Concomitant]
     Active Substance: AMIODARONE
  14. LIPITOR [Concomitant]
     Active Substance: ATORVASTATIN CALCIUM
  15. TACROLIMUS. [Concomitant]
     Active Substance: TACROLIMUS
  16. PREDNISONE. [Concomitant]
     Active Substance: PREDNISONE
  17. DIGOXIN. [Concomitant]
     Active Substance: DIGOXIN

REACTIONS (3)
  - Blood creatinine increased [None]
  - General physical health deterioration [None]
  - Dialysis [None]

NARRATIVE: CASE EVENT DATE: 20150827
